FAERS Safety Report 7510681-1 (Version None)
Quarter: 2011Q2

REPORT INFORMATION
  Report Type: 
  Country: None (occurrence: None)
  Receive Date: 20110530
  Receipt Date: 20110519
  Transmission Date: 20111010
  Serious: Yes (Hospitalization, Other)
  Sender: FDA-Public Use
  Company Number: US-BRISTOL-MYERS SQUIBB COMPANY-15760861

PATIENT
  Sex: Female

DRUGS (1)
  1. SPRYCEL [Suspect]

REACTIONS (3)
  - WHITE BLOOD CELL COUNT INCREASED [None]
  - CEREBROVASCULAR ACCIDENT [None]
  - PLATELET COUNT INCREASED [None]
